FAERS Safety Report 20461598 (Version 1)
Quarter: 2022Q1

REPORT INFORMATION
  Report Type: Spontaneous
  Country: US (occurrence: None)
  Receive Date: 20220211
  Receipt Date: 20220211
  Transmission Date: 20220423
  Serious: Yes (Hospitalization)
  Sender: FDA-Public Use
  Company Number: None

PATIENT
  Sex: Female

DRUGS (1)
  1. XELJANZ XR [Suspect]
     Active Substance: TOFACITINIB CITRATE
     Indication: Psoriatic arthropathy
     Dosage: FREQUENCY : DAILY;?
     Route: 048
     Dates: start: 20200101, end: 20211206

REACTIONS (6)
  - Dyspnoea [None]
  - Tachycardia [None]
  - Gait disturbance [None]
  - Fatigue [None]
  - Stress [None]
  - Pulmonary thrombosis [None]
